FAERS Safety Report 7622805-6 (Version None)
Quarter: 2011Q3

REPORT INFORMATION
  Report Type: 
  Country: None (occurrence: None)
  Receive Date: 20110720
  Receipt Date: 20110207
  Transmission Date: 20111222
  Serious: No
  Sender: FDA-Public Use
  Company Number: US-MYLANLABS-2011S1002676

PATIENT
  Age: 40 Year
  Sex: Female
  Weight: 72.58 kg

DRUGS (2)
  1. TRIAMTERENE AND HYDROCHLOROTHIAZIDE [Suspect]
     Indication: SWELLING
     Route: 048
     Dates: start: 20010101
  2. TRIAMTERENE AND HYDROCHLOROTHIAZIDE [Suspect]
     Route: 048
     Dates: start: 20010101

REACTIONS (1)
  - WEIGHT INCREASED [None]
